FAERS Safety Report 20020342 (Version 2)
Quarter: 2021Q4

REPORT INFORMATION
  Report Type: Spontaneous
  Country: CA (occurrence: CA)
  Receive Date: 20211101
  Receipt Date: 20211111
  Transmission Date: 20220303
  Serious: Yes (Other)
  Sender: FDA-Public Use
  Company Number: CA-LUPIN PHARMACEUTICALS INC.-2021-21179

PATIENT
  Age: 6 Decade
  Sex: Male

DRUGS (6)
  1. CLOMIPRAMINE [Suspect]
     Active Substance: CLOMIPRAMINE
     Indication: Cataplexy
     Dosage: UNK
     Route: 065
  2. CLOMIPRAMINE [Suspect]
     Active Substance: CLOMIPRAMINE
     Dosage: 75 MILLIGRAM, QD
     Route: 065
  3. PAROXETINE [Suspect]
     Active Substance: PAROXETINE
     Indication: Cataplexy
     Dosage: 40 MILLIGRAM
     Route: 065
  4. PAROXETINE [Suspect]
     Active Substance: PAROXETINE
     Dosage: UNK RESUMED
     Route: 065
  5. TROPATEPINE [Concomitant]
     Active Substance: TROPATEPINE
     Indication: Cataplexy
     Dosage: 10 MILLIGRAM
     Route: 065
  6. MODAFINIL [Concomitant]
     Active Substance: MODAFINIL
     Indication: Cataplexy
     Dosage: 500 MILLIGRAM (TAKEN IN TWO DOSES)
     Route: 065

REACTIONS (2)
  - Drug ineffective [Unknown]
  - Drug ineffective for unapproved indication [Unknown]
